FAERS Safety Report 5620769-8 (Version None)
Quarter: 2008Q1

REPORT INFORMATION
  Report Type: 
  Country: None (occurrence: None)
  Receive Date: 20080208
  Receipt Date: 20080130
  Transmission Date: 20080703
  Serious: Yes (Hospitalization)
  Sender: FDA-Public Use
  Company Number: DE-ABBOTT-07P-062-0358320-00

PATIENT
  Sex: Male
  Weight: 83 kg

DRUGS (17)
  1. HUMIRA [Suspect]
     Indication: RHEUMATOID ARTHRITIS
     Route: 058
     Dates: start: 20060608, end: 20061101
  2. METHOTREXATE SODIUM [Suspect]
     Indication: RHEUMATOID ARTHRITIS
     Dates: start: 20040601
  3. METHOTREXATE SODIUM [Suspect]
  4. METHOTREXATE SODIUM [Suspect]
  5. METHOTREXATE SODIUM [Suspect]
     Dates: end: 20061001
  6. LEFLUNOMIDE [Suspect]
     Indication: DRUG USE FOR UNKNOWN INDICATION
     Route: 048
  7. LEFLUNOMIDE [Suspect]
  8. LEFLUNOMIDE [Suspect]
  9. HYDROXYCHLOROQUINE/CHLOROQUINE [Concomitant]
     Indication: RHEUMATOID ARTHRITIS
     Route: 048
     Dates: start: 20031001, end: 20061001
  10. GLUCOCORTICOIDS [Concomitant]
     Indication: RHEUMATOID ARTHRITIS
     Route: 048
     Dates: start: 20061201
  11. DICLOFENAC [Concomitant]
     Indication: RHEUMATOID ARTHRITIS
  12. NSAR NOS [Concomitant]
     Indication: RHEUMATOID ARTHRITIS
  13. OMEPRAZOLE [Concomitant]
     Indication: DRUG USE FOR UNKNOWN INDICATION
     Route: 048
  14. NITROFURANTOIN [Concomitant]
     Indication: ANTIBIOTIC PROPHYLAXIS
     Route: 048
  15. VARDENAFIL [Concomitant]
     Indication: DRUG USE FOR UNKNOWN INDICATION
     Route: 048
  16. SULFASALAZINE [Concomitant]
     Indication: DRUG USE FOR UNKNOWN INDICATION
  17. AM [Concomitant]
     Indication: DRUG USE FOR UNKNOWN INDICATION

REACTIONS (3)
  - ANASTOMOTIC COMPLICATION [None]
  - IMPAIRED HEALING [None]
  - PROSTATE CANCER STAGE II [None]
